FAERS Safety Report 17521441 (Version 1)
Quarter: 2020Q1

REPORT INFORMATION
  Report Type: Spontaneous
  Country: US (occurrence: US)
  Receive Date: 20200310
  Receipt Date: 20200310
  Transmission Date: 20200409
  Serious: Yes (Life-Threatening)
  Sender: FDA-Public Use
  Company Number: None

PATIENT
  Age: 56 Year
  Sex: Female
  Weight: 100.2 kg

DRUGS (1)
  1. CAPECTIABINE [Suspect]
     Active Substance: CAPECITABINE
     Dosage: ?          OTHER FREQUENCY:BID 14D ON/7D OFF;?
     Route: 048
     Dates: start: 20190515, end: 20200310

REACTIONS (1)
  - Disease progression [None]
